FAERS Safety Report 18079490 (Version 1)
Quarter: 2020Q3

REPORT INFORMATION
  Report Type: Spontaneous
  Country: CA (occurrence: CA)
  Receive Date: 20200728
  Receipt Date: 20200728
  Transmission Date: 20201103
  Serious: Yes (Other)
  Sender: FDA-Public Use
  Company Number: CA-TEVA-2020-CA-1806043

PATIENT
  Sex: Female

DRUGS (3)
  1. CABERGOLINE. [Suspect]
     Active Substance: CABERGOLINE
     Indication: PRODUCT USED FOR UNKNOWN INDICATION
     Route: 065
  2. PASIREOTIDE EMBONATE [Suspect]
     Active Substance: PASIREOTIDE PAMOATE
     Indication: RHEUMATOID ARTHRITIS
     Route: 030
  3. SANDOSTATIN [Suspect]
     Active Substance: OCTREOTIDE ACETATE
     Indication: PRODUCT USED FOR UNKNOWN INDICATION
     Route: 030

REACTIONS (4)
  - Off label use [Unknown]
  - Type 2 diabetes mellitus [Unknown]
  - Product use in unapproved indication [Unknown]
  - Condition aggravated [Unknown]
